FAERS Safety Report 15352480 (Version 1)
Quarter: 2018Q3

REPORT INFORMATION
  Report Type: Spontaneous
  Country: US (occurrence: US)
  Receive Date: 20180905
  Receipt Date: 20180905
  Transmission Date: 20181010
  Serious: Yes (Hospitalization)
  Sender: FDA-Public Use
  Company Number: US-SA-2018SA238129

PATIENT
  Age: 59 Year
  Sex: Female

DRUGS (1)
  1. TOUJEO [Suspect]
     Active Substance: INSULIN GLARGINE
     Indication: TYPE 2 DIABETES MELLITUS
     Dosage: 30 IU, BID

REACTIONS (6)
  - Device issue [Unknown]
  - Device ineffective [Unknown]
  - Ankle fracture [Unknown]
  - Vitreous floaters [Unknown]
  - Visual impairment [Unknown]
  - Cataract [Unknown]

NARRATIVE: CASE EVENT DATE: 20180403
